FAERS Safety Report 15349052 (Version 5)
Quarter: 2018Q4

REPORT INFORMATION
  Report Type: Report from Study
  Country: KR (occurrence: KR)
  Receive Date: 20180904
  Receipt Date: 20181029
  Transmission Date: 20190204
  Serious: Yes (Hospitalization)
  Sender: FDA-Public Use
  Company Number: KR-SAKK-2018SA221416AA

PATIENT
  Age: 39 Year
  Sex: Female

DRUGS (6)
  1. INSULIN GLULISINE [Suspect]
     Active Substance: INSULIN GLULISINE
     Indication: DIABETES MELLITUS
     Dosage: 6 U, PRN
     Route: 058
     Dates: start: 201809
  2. INSULIN GLARGINE [Suspect]
     Active Substance: INSULIN GLARGINE
     Indication: DIABETES MELLITUS
     Dosage: 20 U, QD
     Route: 058
     Dates: start: 201809
  3. INSULIN GLARGINE [Suspect]
     Active Substance: INSULIN GLARGINE
     Dosage: 24 U, QD
     Route: 058
     Dates: start: 20180902, end: 201809
  4. INSULIN GLULISINE [Suspect]
     Active Substance: INSULIN GLULISINE
     Dosage: 2 U, TID
     Route: 058
     Dates: start: 201807, end: 201808
  5. INSULIN GLULISINE [Suspect]
     Active Substance: INSULIN GLULISINE
     Dosage: 2 U, TID
     Route: 058
     Dates: start: 201808, end: 201809
  6. INSULIN GLARGINE [Suspect]
     Active Substance: INSULIN GLARGINE
     Dosage: 24 U, QD
     Route: 058
     Dates: start: 201807, end: 201807

REACTIONS (23)
  - Oedema peripheral [Recovered/Resolved]
  - Hypoglycaemia [Recovered/Resolved]
  - Fall [Unknown]
  - Face injury [Unknown]
  - Treatment noncompliance [Unknown]
  - Pain [Not Recovered/Not Resolved]
  - Hyperglycaemia [Recovered/Resolved]
  - Hypoglycaemia [Recovered/Resolved]
  - Fall [Unknown]
  - Face injury [Recovered/Resolved]
  - Head injury [Recovered/Resolved]
  - Hyperglycaemia [Recovered/Resolved]
  - Angina pectoris [Recovered/Resolved]
  - Head injury [Not Recovered/Not Resolved]
  - Urine output decreased [Recovered/Resolved]
  - Cold sweat [Recovered/Resolved]
  - Thermal burn [Recovered/Resolved]
  - Weight increased [Not Recovered/Not Resolved]
  - Fall [Unknown]
  - Feeling abnormal [Unknown]
  - Headache [Unknown]
  - Vomiting [Recovered/Resolved]
  - Hypoglycaemia [Recovered/Resolved]

NARRATIVE: CASE EVENT DATE: 2018
